FAERS Safety Report 4895066-9 (Version None)
Quarter: 2006Q1

REPORT INFORMATION
  Report Type: 
  Country: None (occurrence: None)
  Receive Date: 20060130
  Receipt Date: 20051228
  Transmission Date: 20060701
  Serious: No
  Sender: FDA-Public Use
  Company Number: US-BRISTOL-MYERS SQUIBB COMPANY-13231097

PATIENT
  Age: 62 Year
  Sex: Female

DRUGS (2)
  1. METFORMIN HCL [Suspect]
     Indication: DIABETES MELLITUS
     Dates: start: 20000101
  2. BENADRYL [Suspect]
     Indication: PRURITUS

REACTIONS (6)
  - GLOSSODYNIA [None]
  - HYPOAESTHESIA ORAL [None]
  - LIP PAIN [None]
  - NAUSEA [None]
  - ORAL PAIN [None]
  - VOMITING [None]
